FAERS Safety Report 18152043 (Version 1)
Quarter: 2020Q3

REPORT INFORMATION
  Report Type: Spontaneous
  Country: CA (occurrence: CA)
  Receive Date: 20200814
  Receipt Date: 20200814
  Transmission Date: 20201103
  Serious: Yes (Hospitalization)
  Sender: FDA-Public Use
  Company Number: CA-TEVA-2020-CA-1811999

PATIENT
  Age: 56 Year
  Sex: Female

DRUGS (5)
  1. MIRTAZAPINE. [Concomitant]
     Active Substance: MIRTAZAPINE
  2. LEVOTHYROXINE. [Concomitant]
     Active Substance: LEVOTHYROXINE
  3. PROCHLORPERAZINE. [Concomitant]
     Active Substance: PROCHLORPERAZINE
  4. GEMCITABINE HYDROCHLORIDE FOR INJECTION [Suspect]
     Active Substance: GEMCITABINE HYDROCHLORIDE
     Route: 042
  5. CISPLATIN INJECTION BP 10MG/10ML, 50MG/50ML, 100MG/100ML [Suspect]
     Active Substance: CISPLATIN
     Route: 042

REACTIONS (2)
  - Febrile neutropenia [Recovered/Resolved]
  - Pancytopenia [Recovered/Resolved]
